FAERS Safety Report 8916786 (Version 3)
Quarter: 2013Q1

REPORT INFORMATION
  Report Type: Spontaneous
  Country: US (occurrence: US)
  Receive Date: 20121120
  Receipt Date: 20130215
  Transmission Date: 20140127
  Serious: No
  Sender: FDA-Public Use
  Company Number: US-PFIZER INC-2012286781

PATIENT
  Age: 17 Year
  Sex: Male
  Weight: 72.56 kg

DRUGS (5)
  1. GENOTROPIN [Suspect]
     Indication: GROWTH RETARDATION
     Dosage: 3 MG, DAILY
     Dates: start: 201210
  2. GENOTROPIN [Suspect]
     Dosage: 3.6 MG, DAILY
     Dates: start: 201212
  3. CELEXA [Concomitant]
     Indication: ATTENTION DEFICIT/HYPERACTIVITY DISORDER
     Dosage: 20 MG, DAILY
  4. CONCERTA [Concomitant]
     Indication: ATTENTION DEFICIT/HYPERACTIVITY DISORDER
     Dosage: 72 MG (TWO TABLETS OF 36 MG), DAILY
     Route: 048
  5. CITALOPRAM [Concomitant]
     Indication: ATTENTION DEFICIT/HYPERACTIVITY DISORDER
     Dosage: 40 MG, DAILY

REACTIONS (7)
  - Influenza [Recovered/Resolved]
  - Abdominal pain upper [Recovered/Resolved]
  - Malaise [Recovering/Resolving]
  - Abdominal pain upper [Recovering/Resolving]
  - Nausea [Recovering/Resolving]
  - Abdominal distension [Recovering/Resolving]
  - Vomiting [Recovering/Resolving]
